FAERS Safety Report 4323455-X (Version None)
Quarter: 2004Q1

REPORT INFORMATION
  Report Type: 
  Country: None (occurrence: None)
  Receive Date: 20040324
  Receipt Date: 20040324
  Transmission Date: 20041129
  Serious: Yes (Life-Threatening)
  Sender: FDA-Public Use
  Company Number: None

PATIENT
  Age: 50 Year
  Sex: Female
  Weight: 48.0813 kg

DRUGS (1)
  1. LEXAPRO [Suspect]
     Indication: DEPRESSION
     Dosage: 10 MG ONCE PER D ORAL
     Route: 048
     Dates: start: 20030930, end: 20040224

REACTIONS (9)
  - AGITATION [None]
  - ANXIETY [None]
  - APATHY [None]
  - CONDITION AGGRAVATED [None]
  - DEPRESSION [None]
  - DRUG INEFFECTIVE [None]
  - INDIFFERENCE [None]
  - SEDATION [None]
  - SUICIDAL IDEATION [None]
